FAERS Safety Report 25742242 (Version 1)
Quarter: 2025Q3

REPORT INFORMATION
  Report Type: Other
  Country: CA (occurrence: CA)
  Receive Date: 20250829
  Receipt Date: 20250829
  Transmission Date: 20251021
  Serious: No
  Sender: Harrow Health
  Company Number: CA-APOTEX-2025AP011891

PATIENT

DRUGS (14)
  1. VERKAZIA [Suspect]
     Active Substance: CYCLOSPORINE
     Dosage: UNK UNK, BID
     Route: 065
  2. VERKAZIA [Suspect]
     Active Substance: CYCLOSPORINE
     Dosage: 2 GTT DROPS, QID
     Dates: start: 20250617
  3. FML [Concomitant]
     Active Substance: FLUOROMETHOLONE
     Indication: Graft versus host disease in eye
     Dosage: UNK, QD
     Route: 065
  4. FML [Concomitant]
     Active Substance: FLUOROMETHOLONE
     Dates: start: 20250717
  5. ARTIFICIAL TEAR [HYPROMELLOSE] [Concomitant]
     Indication: Graft versus host disease in eye
     Dosage: UNK, QID
     Route: 065
  6. POLYVINYL ALCOHOL\POVIDONE [Concomitant]
     Active Substance: POLYVINYL ALCOHOL\POVIDONE
     Indication: Graft versus host disease in eye
     Route: 065
  7. ACYCLOVIR [Concomitant]
     Active Substance: ACYCLOVIR
     Indication: Product used for unknown indication
     Dosage: 200 MILLIGRAM, QD
     Route: 048
  8. CHOLECALCIFEROL [Concomitant]
     Active Substance: CHOLECALCIFEROL
     Indication: Product used for unknown indication
     Dosage: 1000 UNITED STATES PHARMACOPEIA UNIT, QD
     Route: 048
  9. DUPILUMAB [Concomitant]
     Active Substance: DUPILUMAB
     Indication: Product used for unknown indication
     Route: 058
  10. DUPILUMAB [Concomitant]
     Active Substance: DUPILUMAB
     Route: 058
  11. HYDROCORTISONE [Concomitant]
     Active Substance: HYDROCORTISONE
     Indication: Product used for unknown indication
     Dosage: UNK, BID AS REQUIRED
     Route: 061
  12. MAGNESIUM OXIDE [Concomitant]
     Active Substance: MAGNESIUM OXIDE
     Indication: Product used for unknown indication
     Dosage: 250 MILLIGRAM, BID
     Route: 048
  13. MOMETASONE [Concomitant]
     Active Substance: MOMETASONE
     Indication: Product used for unknown indication
     Dosage: UNK, BID
     Route: 061
  14. RUXOLITINIB [Concomitant]
     Active Substance: RUXOLITINIB
     Indication: Product used for unknown indication
     Dosage: 5 MILLIGRAM, QD
     Route: 048

REACTIONS (1)
  - Off label use [Unknown]
